FAERS Safety Report 9536514 (Version 1)
Quarter: 2013Q3

REPORT INFORMATION
  Report Type: Spontaneous
  Country: JP (occurrence: JP)
  Receive Date: 20130919
  Receipt Date: 20130919
  Transmission Date: 20140515
  Serious: Yes (Other)
  Sender: FDA-Public Use
  Company Number: JP-ASTELLAS-2013JP009606

PATIENT
  Age: 52 Year
  Sex: Female

DRUGS (12)
  1. TACROLIMUS [Suspect]
     Indication: PROPHYLAXIS AGAINST GRAFT VERSUS HOST DISEASE
     Dosage: 0.02 MG/KG, UNKNOWN/D
     Route: 065
  2. METHOTREXATE [Concomitant]
     Indication: PROPHYLAXIS
     Route: 065
  3. METHOTREXATE [Concomitant]
     Indication: PROPHYLAXIS AGAINST GRAFT VERSUS HOST DISEASE
     Dosage: 15 MG/M2, UNKNOWN/D
     Route: 065
  4. METHOTREXATE [Concomitant]
     Dosage: 10 MG/M2, UNKNOWN/D
     Route: 065
  5. METHOTREXATE [Concomitant]
     Dosage: 10 MG/M2, UNKNOWN/D
     Route: 065
  6. TRIMETHOPRIM SULFAMETHOXAZOLE [Concomitant]
     Indication: ANTIBIOTIC PROPHYLAXIS
     Route: 065
  7. FLUOROQUINOLONES [Concomitant]
     Indication: ANTIBIOTIC PROPHYLAXIS
     Route: 065
  8. ITRACONAZOLE [Concomitant]
     Indication: ANTIFUNGAL PROPHYLAXIS
     Route: 065
  9. ACYCLOVIR                          /00587301/ [Concomitant]
     Indication: ANTIVIRAL PROPHYLAXIS
     Route: 065
  10. PREDNISOLONE [Concomitant]
     Indication: ENGRAFTMENT SYNDROME
     Route: 065
  11. PREDNISOLONE [Concomitant]
     Route: 065
  12. GANCICLOVIR [Concomitant]
     Indication: ANTIVIRAL TREATMENT
     Route: 065

REACTIONS (2)
  - Drug ineffective [Unknown]
  - Acute graft versus host disease in skin [Recovering/Resolving]
